FAERS Safety Report 7725532-X (Version None)
Quarter: 2011Q3

REPORT INFORMATION
  Report Type: 
  Country: None (occurrence: None)
  Receive Date: 20110902
  Receipt Date: 20110825
  Transmission Date: 20111222
  Serious: Yes (Other)
  Sender: FDA-Public Use
  Company Number: FR-GENZYME-CAMP-1001873

PATIENT
  Sex: Female
  Weight: 57 kg

DRUGS (3)
  1. CAMPATH [Suspect]
     Indication: MULTIPLE SCLEROSIS
     Dosage: UNK
     Dates: start: 20100209, end: 20100211
  2. CAMPATH [Suspect]
     Dosage: UNK
     Dates: start: 20090202, end: 20090206
  3. VOGALENE [Concomitant]
     Indication: PRODUCT USED FOR UNKNOWN INDICATION
     Dosage: UNK
     Dates: start: 20110626, end: 20110718

REACTIONS (1)
  - ABORTION SPONTANEOUS [None]
